FAERS Safety Report 24925008 (Version 1)
Quarter: 2025Q1

REPORT INFORMATION
  Report Type: Report from Study
  Country: US (occurrence: US)
  Receive Date: 20250204
  Receipt Date: 20250204
  Transmission Date: 20250409
  Serious: No
  Sender: EXELIXIS
  Company Number: US-EXELIXIS-CABO-24077565

PATIENT
  Sex: Female

DRUGS (2)
  1. CABOMETYX [Suspect]
     Active Substance: CABOZANTINIB S-MALATE
     Indication: Renal cancer
     Dosage: 40 MG, QD
     Route: 048
     Dates: start: 202403
  2. INLYTA [Concomitant]
     Active Substance: AXITINIB

REACTIONS (4)
  - Muscle twitching [Unknown]
  - Tongue coated [Unknown]
  - Hypoaesthesia oral [Unknown]
  - Skin exfoliation [Unknown]
